FAERS Safety Report 8850527 (Version 1)
Quarter: 2012Q4

REPORT INFORMATION
  Report Type: 
  Country: US (occurrence: US)
  Receive Date: 20121019
  Receipt Date: 20121019
  Transmission Date: 20130627
  Serious: Yes (Hospitalization, Other)
  Sender: FDA-Public Use
  Company Number: US-ROCHE-722734

PATIENT
  Age: 21 None
  Sex: Male
  Weight: 63.5 kg

DRUGS (3)
  1. ACCUTANE [Suspect]
     Indication: ACNE
     Route: 065
     Dates: start: 1993, end: 1994
  2. ACCUTANE [Suspect]
     Indication: ACNE CYSTIC
     Route: 065
  3. ACCUTANE [Suspect]
     Route: 065

REACTIONS (4)
  - Colitis ulcerative [Unknown]
  - Gastrointestinal injury [Unknown]
  - Inflammatory bowel disease [Unknown]
  - Small intestinal obstruction [Unknown]
